FAERS Safety Report 25747753 (Version 1)
Quarter: 2025Q3

REPORT INFORMATION
  Report Type: Spontaneous
  Country: US (occurrence: US)
  Receive Date: 20250901
  Receipt Date: 20250901
  Transmission Date: 20251021
  Serious: No
  Sender: JOHNSON AND JOHNSON
  Company Number: US-JNJFOC-20250831860

PATIENT
  Sex: Female

DRUGS (1)
  1. TALVEY [Suspect]
     Active Substance: TALQUETAMAB-TGVS
     Indication: Plasma cell myeloma
     Route: 058

REACTIONS (5)
  - Weight decreased [Unknown]
  - Dry skin [Unknown]
  - Diarrhoea [Unknown]
  - Taste disorder [Unknown]
  - Nail disorder [Unknown]

NARRATIVE: CASE EVENT DATE: 20250826
